FAERS Safety Report 11788963 (Version 52)
Quarter: 2021Q2

REPORT INFORMATION
  Report Type: Report from Study
  Country: CA (occurrence: CA)
  Receive Date: 20151201
  Receipt Date: 20210521
  Transmission Date: 20210716
  Serious: Yes (Life-Threatening, Hospitalization, Other)
  Sender: FDA-Public Use
  Company Number: PHHY2015CA151030

PATIENT
  Age: 61 Year
  Sex: Female

DRUGS (14)
  1. SANDOSTATIN LAR DEPOT [Suspect]
     Active Substance: OCTREOTIDE ACETATE
     Dosage: 30 MG, QMO (EVERY 4 WEEKS)
     Route: 030
     Dates: start: 20190709
  2. SANDOSTATIN LAR DEPOT [Suspect]
     Active Substance: OCTREOTIDE ACETATE
     Dosage: 30 MG, QMO (EVERY 4 WEEKS)
     Route: 030
  3. BABY ASPIRIN [Suspect]
     Active Substance: ASPIRIN
     Indication: PRODUCT USED FOR UNKNOWN INDICATION
     Dosage: UNK
     Route: 065
  4. LUTETIUM (LU 177) [Suspect]
     Active Substance: LUTETIUM LU-177
     Indication: PRODUCT USED FOR UNKNOWN INDICATION
     Dosage: UNK
     Route: 065
     Dates: start: 20200303
  5. ROSUVASTATIN. [Concomitant]
     Active Substance: ROSUVASTATIN
     Dosage: 10 MG, QD
     Route: 048
     Dates: start: 2019
  6. SANDOSTATIN LAR DEPOT [Suspect]
     Active Substance: OCTREOTIDE ACETATE
     Indication: CARCINOID TUMOUR
     Dosage: 30 MG, QMO (EVERY 4 WEEKS)
     Route: 030
     Dates: start: 20151201
  7. ROSUVASTATIN. [Concomitant]
     Active Substance: ROSUVASTATIN
     Indication: PRODUCT USED FOR UNKNOWN INDICATION
     Dosage: 20 MG, QD
     Route: 048
     Dates: end: 2019
  8. SANDOSTATIN [Suspect]
     Active Substance: OCTREOTIDE ACETATE
     Dosage: 50 UG, UNK
     Route: 058
     Dates: start: 20151211
  9. SANDOSTATIN [Suspect]
     Active Substance: OCTREOTIDE ACETATE
     Indication: CARCINOID TUMOUR
     Dosage: 50 UG, UNK
     Route: 058
     Dates: start: 20151112, end: 20151112
  10. BISOPROLOL [Concomitant]
     Active Substance: BISOPROLOL
     Indication: PRODUCT USED FOR UNKNOWN INDICATION
     Dosage: 1 DF
     Route: 048
     Dates: start: 20200116, end: 20200116
  11. SANDOSTATIN LAR DEPOT [Suspect]
     Active Substance: OCTREOTIDE ACETATE
     Dosage: 30 MG, Q3W
     Route: 030
     Dates: start: 20151201
  12. SANDOSTATIN LAR DEPOT [Suspect]
     Active Substance: OCTREOTIDE ACETATE
     Dosage: 30 MG, Q3W (EVERY 3WEEKS)
     Route: 030
  13. SANDOSTATIN LAR DEPOT [Suspect]
     Active Substance: OCTREOTIDE ACETATE
     Dosage: 30 MG, Q3W
     Route: 030
  14. SANDOSTATIN [Suspect]
     Active Substance: OCTREOTIDE ACETATE

REACTIONS (65)
  - Nervousness [Unknown]
  - Asthenopia [Unknown]
  - Swelling [Unknown]
  - Dry eye [Unknown]
  - Back pain [Unknown]
  - Dry mouth [Unknown]
  - Tongue disorder [Unknown]
  - Oral pain [Unknown]
  - Influenza like illness [Unknown]
  - Rash [Unknown]
  - Abdominal distension [Unknown]
  - Diarrhoea [Unknown]
  - Injection site swelling [Unknown]
  - Hair growth abnormal [Unknown]
  - Swollen tongue [Unknown]
  - Cyst [Unknown]
  - Joint swelling [Unknown]
  - Pain in jaw [Unknown]
  - Vomiting [Unknown]
  - Coronary artery occlusion [Unknown]
  - Cardiac neoplasm unspecified [Unknown]
  - Humerus fracture [Recovering/Resolving]
  - Dizziness [Unknown]
  - Blood pressure increased [Unknown]
  - Eructation [Recovering/Resolving]
  - Clavicle fracture [Unknown]
  - Neuropathy peripheral [Unknown]
  - Dental caries [Unknown]
  - Tooth fracture [Unknown]
  - Hypoaesthesia [Recovered/Resolved]
  - Peripheral swelling [Unknown]
  - Feeling cold [Unknown]
  - Muscle spasms [Unknown]
  - Headache [Unknown]
  - Injection site pain [Recovered/Resolved]
  - Pain [Unknown]
  - Malignant neoplasm progression [Unknown]
  - Hepatic enzyme increased [Unknown]
  - Injection site pruritus [Unknown]
  - Myocardial infarction [Recovering/Resolving]
  - Fatigue [Unknown]
  - Decreased appetite [Unknown]
  - Platelet count decreased [Not Recovered/Not Resolved]
  - Abdominal discomfort [Recovering/Resolving]
  - Injection site pain [Not Recovered/Not Resolved]
  - Inappropriate schedule of product administration [Unknown]
  - Chest discomfort [Unknown]
  - Blood cholesterol decreased [Unknown]
  - Carcinoid tumour [Unknown]
  - Fall [Unknown]
  - Arthralgia [Unknown]
  - Malaise [Unknown]
  - Pulmonary mass [Unknown]
  - Blood pressure decreased [Unknown]
  - Anxiety [Unknown]
  - Lip haemorrhage [Unknown]
  - Flatulence [Recovering/Resolving]
  - Needle issue [Unknown]
  - Eye pain [Unknown]
  - Tongue biting [Unknown]
  - Hypoaesthesia [Unknown]
  - Haemoglobin decreased [Unknown]
  - Splenomegaly [Unknown]
  - Feeling abnormal [Unknown]
  - Musculoskeletal pain [Unknown]

NARRATIVE: CASE EVENT DATE: 20151112
